FAERS Safety Report 15407494 (Version 1)
Quarter: 2018Q3

REPORT INFORMATION
  Report Type: Spontaneous
  Country: US (occurrence: US)
  Receive Date: 20180920
  Receipt Date: 20180920
  Transmission Date: 20181010
  Serious: No
  Sender: FDA-Public Use
  Company Number: US-AMARIN PHARMA, INC.-2018AMR000059

PATIENT
  Age: 79 Year
  Sex: Male

DRUGS (2)
  1. VASCEPA [Suspect]
     Active Substance: ICOSAPENT ETHYL
     Indication: BLOOD CHOLESTEROL
     Route: 048
     Dates: start: 201802, end: 20180316
  2. VASCEPA [Suspect]
     Active Substance: ICOSAPENT ETHYL
     Indication: ROUTINE HEALTH MAINTENANCE

REACTIONS (3)
  - Choking [Recovered/Resolved]
  - Product use complaint [Recovered/Resolved]
  - Product size issue [Recovered/Resolved]

NARRATIVE: CASE EVENT DATE: 20180316
